FAERS Safety Report 23209916 (Version 2)
Quarter: 2023Q4

REPORT INFORMATION
  Report Type: Spontaneous
  Country: US (occurrence: US)
  Receive Date: 20231121
  Receipt Date: 20231129
  Transmission Date: 20240110
  Serious: No
  Sender: FDA-Public Use
  Company Number: US-Calliditas-2023CAL01474

PATIENT
  Age: 53 Year
  Sex: Female
  Weight: 82 kg

DRUGS (1)
  1. TARPEYO [Suspect]
     Active Substance: BUDESONIDE
     Indication: IgA nephropathy
     Dosage: 16MG (4MG CAPSULES) ONCE DAILY
     Route: 048
     Dates: start: 20231016

REACTIONS (2)
  - Peripheral swelling [Recovered/Resolved]
  - Abdominal distension [Recovered/Resolved]
